FAERS Safety Report 4733449-8 (Version None)
Quarter: 2005Q3

REPORT INFORMATION
  Report Type: 
  Country: None (occurrence: None)
  Receive Date: 20050803
  Receipt Date: 20050725
  Transmission Date: 20060218
  Serious: Yes (Hospitalization)
  Sender: FDA-Public Use
  Company Number: US-JNJFOC-20050705821

PATIENT
  Sex: Male

DRUGS (4)
  1. DURAGESIC-100 [Suspect]
     Route: 062
     Dates: start: 20000101
  2. LIPITOR [Concomitant]
     Route: 048
  3. GLUCOPHAGE [Concomitant]
     Route: 048
  4. GLUCOTROL [Concomitant]
     Route: 048

REACTIONS (1)
  - NEPHROLITHIASIS [None]
